FAERS Safety Report 9853782 (Version 1)
Quarter: 2014Q1

REPORT INFORMATION
  Report Type: Spontaneous
  Country: US (occurrence: US)
  Receive Date: 20140129
  Receipt Date: 20140129
  Transmission Date: 20141002
  Serious: No
  Sender: FDA-Public Use
  Company Number: US-GLAXOSMITHKLINE-A1035042A

PATIENT
  Age: 53 Year
  Sex: Female

DRUGS (5)
  1. WELLBUTRIN [Suspect]
     Indication: DEPRESSION
     Dosage: 150MG TWICE PER DAY
     Route: 048
  2. COUMADIN [Concomitant]
  3. LISINOPRIL + HYDROCHLOROTHIAZIDE [Concomitant]
  4. FUROSEMIDE [Concomitant]
  5. PRAVASTATIN [Concomitant]

REACTIONS (4)
  - Pruritus [Unknown]
  - Nausea [Unknown]
  - Off label use [Unknown]
  - Wrong technique in drug usage process [Unknown]
